FAERS Safety Report 6163826-2 (Version None)
Quarter: 2009Q2

REPORT INFORMATION
  Report Type: 
  Country: None (occurrence: None)
  Receive Date: 20090420
  Receipt Date: 20090407
  Transmission Date: 20091009
  Serious: Yes (Other)
  Sender: FDA-Public Use
  Company Number: GXKR2009GB00793

PATIENT
  Age: 38 Year
  Sex: Female

DRUGS (4)
  1. MIRTAZAPINE [Suspect]
     Indication: DEPRESSION
     Dosage: 15 MG, QD, ORAL
     Route: 048
     Dates: start: 20080908, end: 20081105
  2. DIAZEPAM [Concomitant]
  3. HYOSCINE HBR HYT [Concomitant]
  4. RISPERIDONE [Concomitant]

REACTIONS (2)
  - GRAND MAL CONVULSION [None]
  - HYPOTHERMIA [None]
